FAERS Safety Report 12968888 (Version 3)
Quarter: 2017Q1

REPORT INFORMATION
  Report Type: Spontaneous
  Country: US (occurrence: US)
  Receive Date: 20161123
  Receipt Date: 20170209
  Transmission Date: 20170428
  Serious: Yes (Hospitalization, Other)
  Sender: FDA-Public Use
  Company Number: US-PFIZER INC-2016544787

PATIENT
  Age: 71 Year
  Sex: Female

DRUGS (1)
  1. RAPAMUNE [Suspect]
     Active Substance: SIROLIMUS
     Dosage: 1 MG, UNK

REACTIONS (4)
  - Haematoma [Recovered/Resolved]
  - Pain [Recovered/Resolved]
  - Thrombosis [Recovered/Resolved]
  - Haemorrhage [Recovered/Resolved]
